FAERS Safety Report 18443755 (Version 2)
Quarter: 2020Q4

REPORT INFORMATION
  Report Type: Spontaneous
  Country: IN (occurrence: IN)
  Receive Date: 20201029
  Receipt Date: 20201112
  Transmission Date: 20210114
  Serious: Yes (Other)
  Sender: FDA-Public Use
  Company Number: IN-BRISTOL-MYERS SQUIBB COMPANY-BMS-2020-058327

PATIENT
  Sex: Male

DRUGS (1)
  1. OPDYTA [Suspect]
     Active Substance: NIVOLUMAB
     Indication: HEAD AND NECK CANCER
     Dosage: 220 MILLIGRAM
     Route: 065

REACTIONS (2)
  - Lymphadenopathy [Unknown]
  - Rash [Recovered/Resolved]
